FAERS Safety Report 20304547 (Version 1)
Quarter: 2022Q1

REPORT INFORMATION
  Report Type: Spontaneous
  Country: US (occurrence: None)
  Receive Date: 20220106
  Receipt Date: 20220106
  Transmission Date: 20220423
  Serious: Yes (Hospitalization)
  Sender: FDA-Public Use
  Company Number: None

PATIENT
  Sex: Female
  Weight: 107.96 kg

DRUGS (1)
  1. ASPIRIN [Suspect]
     Active Substance: ASPIRIN
     Dates: end: 20211115

REACTIONS (14)
  - Atrial fibrillation [None]
  - Hypertensive heart disease [None]
  - Cardiomyopathy [None]
  - Cardiac failure congestive [None]
  - Acute kidney injury [None]
  - Hyponatraemia [None]
  - Transaminases increased [None]
  - Papilloedema [None]
  - Intracranial pressure increased [None]
  - Tricuspid valve incompetence [None]
  - Pneumonia [None]
  - Hypokalaemia [None]
  - Hypomagnesaemia [None]
  - Myocardial ischaemia [None]

NARRATIVE: CASE EVENT DATE: 20211115
